FAERS Safety Report 4411130-2 (Version None)
Quarter: 2004Q2

REPORT INFORMATION
  Report Type: 
  Country: None (occurrence: None)
  Receive Date: 20040630
  Receipt Date: 20040423
  Transmission Date: 20050107
  Serious: No
  Sender: FDA-Public Use
  Company Number: 04P-163-0258604-00

PATIENT
  Age: 55 Year
  Sex: Female
  Weight: 109.7705 kg

DRUGS (7)
  1. HUMIRA [Suspect]
     Indication: ARTHRITIS
     Dosage: 40 MG, 1 IN 2 WK, SUBCUTANEOUS
     Route: 058
     Dates: start: 20040312
  2. PREDNISONE TAB [Concomitant]
  3. OXYCODONE HCL [Concomitant]
  4. MELOXICAM [Concomitant]
  5. CENTRUM [Concomitant]
  6. FAMOTIDINE [Concomitant]
  7. LEXAPRO [Concomitant]

REACTIONS (4)
  - FEELING ABNORMAL [None]
  - HYPERHIDROSIS [None]
  - KIDNEY INFECTION [None]
  - URINARY INCONTINENCE [None]
